FAERS Safety Report 15003975 (Version 1)
Quarter: 2018Q2

REPORT INFORMATION
  Report Type: Spontaneous
  Country: US (occurrence: US)
  Receive Date: 20180613
  Receipt Date: 20180613
  Transmission Date: 20180711
  Serious: Yes (Other)
  Sender: FDA-Public Use
  Company Number: US-ACCORD-068193

PATIENT
  Age: 46 Year
  Sex: Female
  Weight: 43.09 kg

DRUGS (1)
  1. QUETIAPINE ACCORD [Suspect]
     Active Substance: QUETIAPINE
     Indication: BIPOLAR DISORDER
     Dosage: STRENGTH: 300 MG
     Route: 048
     Dates: start: 20180505, end: 20180603

REACTIONS (11)
  - Akathisia [Unknown]
  - Somnolence [Unknown]
  - Irritability [Unknown]
  - Aggression [Unknown]
  - Fatigue [Unknown]
  - Product colour issue [Unknown]
  - Hallucination, visual [Unknown]
  - Drug ineffective [Unknown]
  - Product substitution issue [Unknown]
  - Product shape issue [Unknown]
  - Hallucination, auditory [Unknown]
